FAERS Safety Report 8621278 (Version 4)
Quarter: 2012Q4

REPORT INFORMATION
  Report Type: 
  Country: FR (occurrence: FR)
  Receive Date: 20120619
  Receipt Date: 20120904
  Transmission Date: 20130627
  Serious: Yes (Hospitalization, Other)
  Sender: FDA-Public Use
  Company Number: PHHY2012FR051363

PATIENT
  Age: 76 None
  Sex: Male

DRUGS (13)
  1. TEGRETOL LP [Suspect]
     Indication: EPILEPSY
     Dosage: 1 DF, daily
     Route: 048
     Dates: start: 1983
  2. 5-FLUOROURACIL [Suspect]
     Indication: COLON CANCER
     Dosage: 736 +2208 mg
     Dates: start: 20120502
  3. 5-FLUOROURACIL [Suspect]
     Dosage: 736 mg, UNK
     Dates: start: 20120503
  4. ONDANSETRON [Suspect]
     Indication: PROPHYLAXIS OF NAUSEA AND VOMITING
     Dosage: 8 mg, UNK
     Route: 042
     Dates: start: 20120502
  5. OXALIPLATIN [Suspect]
     Indication: COLON CANCER
     Dosage: 156 mg, UNK
     Route: 042
     Dates: start: 20120502
  6. RAMIPRIL [Concomitant]
     Dosage: 5 mg, once a day
  7. LODOZ [Concomitant]
  8. FRACTAL [Concomitant]
     Dosage: 80 mg, UNK
  9. FRAXODI [Concomitant]
  10. SOLU-MEDROL [Concomitant]
     Dosage: 80 mg, once a day
     Route: 042
  11. MAGNESIUM SULFATE [Concomitant]
     Dosage: 1.5 g, BID
  12. CALCIUM GLUCONATE [Concomitant]
     Dosage: 1 g, BID
  13. CALCIUM FOLINATE [Concomitant]

REACTIONS (5)
  - Urinary incontinence [Recovered/Resolved]
  - Malaise [Recovered/Resolved]
  - Colon cancer [Unknown]
  - B-cell lymphoma [Unknown]
  - Phlebitis [Unknown]
